FAERS Safety Report 5427042-1 (Version None)
Quarter: 2007Q3

REPORT INFORMATION
  Report Type: 
  Country: None (occurrence: None)
  Receive Date: 20070824
  Receipt Date: 20070824
  Transmission Date: 20080115
  Serious: No
  Sender: FDA-Public Use
  Company Number: None

PATIENT
  Age: 50 Year
  Sex: Female
  Weight: 76.2043 kg

DRUGS (1)
  1. FLUTICASONE/SALMETEROL DISK INH 500/50 [Suspect]
     Indication: ASTHMA
     Dosage: ONE INHALATION TWICE A DAY BY MOUTH
     Route: 048
     Dates: start: 20060814

REACTIONS (1)
  - RASH GENERALISED [None]
